FAERS Safety Report 17540710 (Version 1)
Quarter: 2020Q1

REPORT INFORMATION
  Report Type: Spontaneous
  Country: US (occurrence: US)
  Receive Date: 20200313
  Receipt Date: 20200313
  Transmission Date: 20200409
  Serious: No
  Sender: FDA-Public Use
  Company Number: US-ASTRAZENECA-2020SE34199

PATIENT
  Sex: Male
  Weight: 73.5 kg

DRUGS (3)
  1. DALIRESP [Suspect]
     Active Substance: ROFLUMILAST
     Indication: CHRONIC OBSTRUCTIVE PULMONARY DISEASE
     Route: 048
     Dates: start: 2019
  2. DALIRESP [Suspect]
     Active Substance: ROFLUMILAST
     Indication: CHRONIC OBSTRUCTIVE PULMONARY DISEASE
     Route: 048
     Dates: start: 2019
  3. ANORO [Concomitant]
     Active Substance: UMECLIDINIUM BROMIDE\VILANTEROL TRIFENATATE
     Indication: PNEUMONITIS
     Route: 065

REACTIONS (26)
  - Injection site pain [Not Recovered/Not Resolved]
  - Cerebrovascular disorder [Unknown]
  - Muscle tightness [Unknown]
  - Nerve compression [Unknown]
  - Back pain [Not Recovered/Not Resolved]
  - Barrett^s oesophagus [Unknown]
  - Memory impairment [Unknown]
  - Pain [Unknown]
  - Hypersensitivity [Not Recovered/Not Resolved]
  - Pain in extremity [Unknown]
  - Crying [Unknown]
  - Vomiting [Recovered/Resolved]
  - Headache [Not Recovered/Not Resolved]
  - Swelling [Not Recovered/Not Resolved]
  - Arterial disorder [Not Recovered/Not Resolved]
  - Gastrooesophageal reflux disease [Unknown]
  - Body height decreased [Not Recovered/Not Resolved]
  - Pyrexia [Recovered/Resolved]
  - Muscle spasms [Not Recovered/Not Resolved]
  - Sleep disorder due to general medical condition, insomnia type [Unknown]
  - Lacrimation increased [Not Recovered/Not Resolved]
  - Abdominal distension [Unknown]
  - Rash [Not Recovered/Not Resolved]
  - Gastritis [Unknown]
  - Arthritis [Not Recovered/Not Resolved]
  - Frequent bowel movements [Unknown]
